FAERS Safety Report 23928901 (Version 1)
Quarter: 2024Q2

REPORT INFORMATION
  Report Type: Spontaneous
  Country: US (occurrence: US)
  Receive Date: 20240531
  Receipt Date: 20240531
  Transmission Date: 20240716
  Serious: No
  Sender: FDA-Public Use
  Company Number: US-RADIUS HEALTH INC.-2024US001938

PATIENT
  Sex: Female
  Weight: 38.73 kg

DRUGS (11)
  1. TYMLOS [Suspect]
     Active Substance: ABALOPARATIDE
     Indication: Illness
     Dosage: 80 MICROGRAM, QD
     Route: 058
  2. VITAMIN D3 [Concomitant]
     Active Substance: CHOLECALCIFEROL
     Indication: Product used for unknown indication
  3. FISH OIL [Concomitant]
     Active Substance: FISH OIL
     Indication: Product used for unknown indication
  4. CITRACAL + D3 [Concomitant]
     Indication: Product used for unknown indication
  5. VITAMINS [Concomitant]
     Active Substance: VITAMINS
     Indication: Product used for unknown indication
  6. LORATADINE [Concomitant]
     Active Substance: LORATADINE
     Indication: Product used for unknown indication
  7. TRAMADOL HCL [Concomitant]
     Active Substance: TRAMADOL HYDROCHLORIDE
     Indication: Product used for unknown indication
     Dosage: UNK, BID
  8. LISINOPRIL [Concomitant]
     Active Substance: LISINOPRIL
     Indication: Product used for unknown indication
  9. ATORVASTATIN CALCIUM [Concomitant]
     Active Substance: ATORVASTATIN CALCIUM
     Indication: Product used for unknown indication
  10. DULOXETINE HYDROCHLORIDE [Concomitant]
     Active Substance: DULOXETINE HYDROCHLORIDE
     Indication: Product used for unknown indication
  11. LINZESS [Concomitant]
     Active Substance: LINACLOTIDE
     Indication: Product used for unknown indication

REACTIONS (4)
  - Feeling cold [Unknown]
  - Feeling abnormal [Unknown]
  - Lethargy [Unknown]
  - Malaise [Unknown]
